FAERS Safety Report 4716227-5 (Version None)
Quarter: 2005Q2

REPORT INFORMATION
  Report Type: 
  Country: None (occurrence: None)
  Receive Date: 20050630
  Receipt Date: 20050311
  Transmission Date: 20051028
  Serious: Yes (Hospitalization, Other)
  Sender: FDA-Public Use
  Company Number: USA050393093

PATIENT
  Age: 83 Year
  Sex: Female
  Weight: 87 kg

DRUGS (13)
  1. HUMALOG MIX 75/25 [Suspect]
     Indication: DIABETES MELLITUS
     Dosage: 10 U DAY
  2. EVISTA [Suspect]
     Dosage: 30 MG
  3. ACTONEL [Concomitant]
  4. MULTIVITAMIN [Concomitant]
  5. SYNTHROID [Concomitant]
  6. AVANDIA [Concomitant]
  7. LASIX [Concomitant]
  8. POTASSIUM CHLORIDE [Concomitant]
  9. ICAPS [Concomitant]
  10. CRESTOR [Concomitant]
  11. ETODOLAC [Concomitant]
  12. ZAROXOLYN [Concomitant]
  13. ACCOLATE [Concomitant]

REACTIONS (6)
  - ARTHRITIS [None]
  - CARDIAC FAILURE CONGESTIVE [None]
  - EYE DEGENERATIVE DISORDER [None]
  - FRACTURE [None]
  - HIP ARTHROPLASTY [None]
  - RENAL DISORDER [None]
